FAERS Safety Report 14967378 (Version 1)
Quarter: 2018Q2

REPORT INFORMATION
  Report Type: Spontaneous
  Country: US (occurrence: US)
  Receive Date: 20180511
  Receipt Date: 20180511
  Transmission Date: 20180711
  Serious: Yes (Disabling)
  Sender: FDA-Public Use
  Company Number: None

PATIENT
  Age: 71 Year
  Sex: Female
  Weight: 52.2 kg

DRUGS (8)
  1. EFFECXOR [Concomitant]
  2. LIPITOR [Concomitant]
     Active Substance: ATORVASTATIN CALCIUM
  3. VITAMIN D [Concomitant]
     Active Substance: CHOLECALCIFEROL
  4. VITAMIN A [Concomitant]
     Active Substance: VITAMIN A
  5. LEVOFLOXACIN. [Suspect]
     Active Substance: LEVOFLOXACIN
     Indication: SINUSITIS
     Dosage: ?          QUANTITY:1 TABLET(S);?
     Route: 048
     Dates: start: 20180422, end: 20180429
  6. FEMARA [Concomitant]
     Active Substance: LETROZOLE
  7. MULTIVITAMIN [Concomitant]
     Active Substance: VITAMINS
  8. IRON SUPPLEMENT [Concomitant]
     Active Substance: IRON

REACTIONS (5)
  - Thirst [None]
  - Tendonitis [None]
  - Nausea [None]
  - Fatigue [None]
  - Dysgeusia [None]

NARRATIVE: CASE EVENT DATE: 20180429
